FAERS Safety Report 21883901 (Version 1)
Quarter: 2023Q1

REPORT INFORMATION
  Report Type: Spontaneous
  Country: CN (occurrence: CN)
  Receive Date: 20230119
  Receipt Date: 20230119
  Transmission Date: 20230417
  Serious: Yes (Hospitalization, Other)
  Sender: FDA-Public Use
  Company Number: CN-HALEON-CNCH2023APC002692

PATIENT

DRUGS (3)
  1. IBUPROFEN [Suspect]
     Active Substance: IBUPROFEN
     Indication: COVID-19
     Dosage: 1 DF, BID
     Route: 048
     Dates: start: 20221222, end: 20221225
  2. HERBALS [Suspect]
     Active Substance: HERBALS
     Indication: COVID-19
     Dosage: 4 DF, TID
     Route: 048
     Dates: start: 20221222, end: 20221225
  3. HERBALS [Suspect]
     Active Substance: HERBALS
     Indication: COVID-19
     Dosage: UNK UNK, TID, 1 PACKET
     Route: 048
     Dates: start: 20221222, end: 20221225

REACTIONS (14)
  - Rash [Recovering/Resolving]
  - Rash erythematous [Recovering/Resolving]
  - Pruritus [Recovering/Resolving]
  - Skin exfoliation [Recovering/Resolving]
  - Sleep disorder [Recovering/Resolving]
  - Drug hypersensitivity [Recovering/Resolving]
  - Dermatitis exfoliative [Recovering/Resolving]
  - Poor quality sleep [Recovering/Resolving]
  - Flushing [Recovering/Resolving]
  - Skin swelling [Recovering/Resolving]
  - Skin discolouration [Recovering/Resolving]
  - Body temperature increased [Recovering/Resolving]
  - Skin lesion [Recovering/Resolving]
  - Product use in unapproved indication [Unknown]

NARRATIVE: CASE EVENT DATE: 20221201
